FAERS Safety Report 7146612-6 (Version None)
Quarter: 2010Q4

REPORT INFORMATION
  Report Type: 
  Country: None (occurrence: None)
  Receive Date: 20101208
  Receipt Date: 20101203
  Transmission Date: 20110411
  Serious: No
  Sender: FDA-Public Use
  Company Number: US-PFIZER INC-2010164050

PATIENT
  Sex: Male
  Weight: 90.703 kg

DRUGS (18)
  1. TOVIAZ [Suspect]
     Indication: BLADDER DISORDER
     Dosage: 4 MG, UNK
     Route: 048
     Dates: start: 20101101
  2. WARFARIN SODIUM [Concomitant]
     Dosage: UNK
  3. HYTRIN [Concomitant]
     Dosage: UNK
  4. ACETYLSALICYLIC ACID [Concomitant]
     Dosage: 81 MG, UNK
     Route: 048
  5. ALLOPURINOL [Concomitant]
     Dosage: 300 MG, UNK
  6. COLCHICINE [Concomitant]
     Dosage: 0.6 MG, UNK
  7. FOLIC ACID [Concomitant]
     Dosage: 1 MG, UNK
  8. GABAPENTIN [Concomitant]
     Dosage: 300 MG, 4X/DAY
  9. LEVOXYL [Concomitant]
     Dosage: 88 MG, UNK
  10. LYRICA [Concomitant]
     Dosage: 300 MG, 3X/DAY
  11. METOLAZONE [Concomitant]
     Dosage: 2.5 MG, WEEKLY
  12. MULTIVITAMIN [Concomitant]
     Dosage: UNK
  13. LOVAZA [Concomitant]
     Dosage: UNK
  14. LANTUS [Concomitant]
     Dosage: 30 IU, UNK
  15. PROTONIX [Concomitant]
     Dosage: 40 MG, UNK
  16. VICODIN [Concomitant]
     Dosage: 7.5/750
  17. SPIRIVA [Concomitant]
     Dosage: 18 UG, 1X/DAY
  18. CILOSTAZOL [Concomitant]
     Dosage: 50 MG, 1X/DAY

REACTIONS (1)
  - CONSTIPATION [None]
